FAERS Safety Report 6976255-6 (Version None)
Quarter: 2010Q3

REPORT INFORMATION
  Report Type: 
  Country: None (occurrence: None)
  Receive Date: 20100910
  Receipt Date: 20100902
  Transmission Date: 20110219
  Serious: Yes (Death, Hospitalization)
  Sender: FDA-Public Use
  Company Number: NL-SANOFI-AVENTIS-2010SA051550

PATIENT
  Age: 68 Year
  Sex: Female

DRUGS (3)
  1. OXALIPLATIN [Suspect]
     Route: 041
     Dates: start: 20100610, end: 20100610
  2. AVASTIN [Suspect]
     Route: 042
     Dates: start: 20100610, end: 20100610
  3. XELODA [Suspect]
     Route: 048
     Dates: start: 20100610, end: 20100624

REACTIONS (4)
  - GASTRIC HAEMORRHAGE [None]
  - SEPSIS [None]
  - THROMBOCYTOPENIA [None]
  - VOMITING [None]
